FAERS Safety Report 7892887 (Version 5)
Quarter: 2013Q2

REPORT INFORMATION
  Report Type: Report from Study
  Country: JP (occurrence: JP)
  Receive Date: 20110411
  Receipt Date: 20130408
  Transmission Date: 20140414
  Serious: Yes (Death, Hospitalization, Other)
  Sender: FDA-Public Use
  Company Number: JP-CELGENEUS-087-21880-11021998

PATIENT
  Age: 67 Year
  Sex: Male

DRUGS (27)
  1. REVLIMID [Suspect]
     Indication: PLASMA CELL MYELOMA
     Dosage: 10 MILLIGRAM
     Route: 048
     Dates: start: 20101113, end: 20101203
  2. REVLIMID [Suspect]
     Dosage: 15 MILLIGRAM
     Route: 048
     Dates: start: 20101211, end: 20101224
  3. REVLIMID [Suspect]
     Dosage: 15 MILLIGRAM
     Route: 048
     Dates: start: 20110228, end: 20110320
  4. LENADEX [Suspect]
     Indication: PLASMA CELL MYELOMA
     Dosage: 40 MILLIGRAM
     Route: 048
     Dates: start: 20101113, end: 20101113
  5. LENADEX [Suspect]
     Dosage: 40 MILLIGRAM
     Route: 048
     Dates: start: 20101120, end: 20101120
  6. LENADEX [Suspect]
     Dosage: 40 MILLIGRAM
     Route: 048
     Dates: start: 20101127, end: 20101127
  7. LENADEX [Suspect]
     Dosage: 40 MILLIGRAM
     Route: 048
     Dates: start: 20101204, end: 20101204
  8. LENADEX [Suspect]
     Dosage: 40 MILLIGRAM
     Route: 048
     Dates: start: 20110228, end: 20110321
  9. DEXART [Concomitant]
     Indication: PLASMA CELL MYELOMA
     Dosage: 40 MILLIGRAM
     Route: 041
     Dates: start: 20110210, end: 20110213
  10. DEXART [Concomitant]
     Dosage: 40 MILLIGRAM
     Route: 041
     Dates: start: 20110218, end: 20110221
  11. ZYLORIC [Concomitant]
     Indication: HYPERURICAEMIA
     Dosage: 200 MILLIGRAM
     Route: 048
     Dates: start: 20101211, end: 20110323
  12. ZYLORIC [Concomitant]
     Dosage: 200 MILLIGRAM
     Route: 048
     Dates: start: 20110218, end: 20110221
  13. ZYLORIC [Concomitant]
     Dosage: 200 MILLIGRAM
     Route: 048
     Dates: start: 20101102, end: 20110323
  14. PARIET [Concomitant]
     Indication: PROPHYLAXIS
     Dosage: 10 MILLIGRAM
     Route: 048
     Dates: start: 20101105, end: 20110323
  15. LOXONIN [Concomitant]
     Indication: UNEVALUABLE EVENT
     Dosage: 60 MILLIGRAM
     Route: 048
     Dates: start: 20101112, end: 20110323
  16. BAYASPIRIN [Concomitant]
     Indication: PROPHYLAXIS
     Dosage: 100 MILLIGRAM
     Route: 048
     Dates: start: 20101130, end: 20110323
  17. LYRICA [Concomitant]
     Indication: NEUROPATHY PERIPHERAL
     Dosage: 150 MILLIGRAM
     Route: 048
     Dates: start: 20101130, end: 20110108
  18. MAGMITT [Concomitant]
     Indication: PROPHYLAXIS
     Dosage: 1980 MILLIGRAM
     Route: 048
     Dates: start: 20101217, end: 20110108
  19. VOLTAREN [Concomitant]
     Indication: UNEVALUABLE EVENT
     Dosage: ADEQUATE DOSE
     Route: 062
     Dates: start: 20101203, end: 20101207
  20. SALINE [Concomitant]
     Indication: RENAL IMPAIRMENT
     Dosage: 500 MILLILITER
     Route: 041
     Dates: start: 20101027, end: 20101115
  21. SALINE [Concomitant]
     Dosage: 500 MILLILITER
     Route: 041
     Dates: start: 20110210, end: 20110221
  22. PAMORELIN HYDROCHLORIDE [Concomitant]
     Indication: RENAL IMPAIRMENT
     Dosage: 500 MILLILITER
     Route: 041
     Dates: start: 20110210, end: 20110221
  23. ZOMETA [Concomitant]
     Indication: UNEVALUABLE EVENT
     Dosage: 4 MILLIGRAM
     Route: 041
     Dates: start: 20110210, end: 20110210
  24. SOLDEM 3A [Concomitant]
     Indication: PROPHYLAXIS
     Dosage: 500 MILLILITER
     Route: 041
     Dates: start: 20110213, end: 20110221
  25. ELCITONIN [Concomitant]
     Indication: UNEVALUABLE EVENT
     Dosage: 40U
     Route: 041
     Dates: start: 20110210, end: 20110212
  26. OXINORM [Concomitant]
     Indication: UNEVALUABLE EVENT
     Dosage: 2.5 MILLIGRAM
     Route: 048
     Dates: start: 20110302, end: 20110313
  27. OXYCONTIN [Concomitant]
     Indication: UNEVALUABLE EVENT
     Dosage: 10 MILLIGRAM
     Route: 048
     Dates: start: 20110308, end: 20110324

REACTIONS (10)
  - Septic shock [Fatal]
  - Cardiac failure [Fatal]
  - Pneumonia [Fatal]
  - Pneumonia influenzal [Not Recovered/Not Resolved]
  - Anaemia [Recovered/Resolved]
  - Influenza [Recovered/Resolved with Sequelae]
  - Thrombocytopenia [Recovered/Resolved]
  - Platelet count decreased [Not Recovered/Not Resolved]
  - White blood cell count decreased [Recovered/Resolved]
  - Anaemia [Not Recovered/Not Resolved]
